FAERS Safety Report 16052350 (Version 1)
Quarter: 2019Q1

REPORT INFORMATION
  Report Type: Spontaneous
  Country: US (occurrence: US)
  Receive Date: 20190308
  Receipt Date: 20190308
  Transmission Date: 20190418
  Serious: No
  Sender: FDA-Public Use
  Company Number: US-009507513-1903USA001269

PATIENT

DRUGS (1)
  1. NEXPLANON [Suspect]
     Active Substance: ETONOGESTREL
     Dosage: 1 DOSAGE FORM, 3 YEAR
     Route: 059
     Dates: start: 20160119

REACTIONS (1)
  - Incorrect product administration duration [Unknown]

NARRATIVE: CASE EVENT DATE: 20190119
